FAERS Safety Report 19723276 (Version 2)
Quarter: 2021Q3

REPORT INFORMATION
  Report Type: Report from Study
  Country: FR (occurrence: FR)
  Receive Date: 20210819
  Receipt Date: 20210916
  Transmission Date: 20211014
  Serious: Yes (Hospitalization, Other)
  Sender: FDA-Public Use
  Company Number: FR-TAKEDA-2021TUS051636

PATIENT
  Age: 34 Year
  Sex: Female

DRUGS (16)
  1. SPASMAG [Concomitant]
     Indication: POLYARTHRITIS
     Dosage: 500 MILLILITER, Q2WEEKS
     Route: 042
     Dates: start: 20210107, end: 20210609
  2. SPASMAG [Concomitant]
     Indication: CHONDROCALCINOSIS
     Dosage: 500 MILLILITER, 1/WEEK
     Route: 042
     Dates: start: 20210610, end: 20210721
  3. NUTRYELT [Concomitant]
     Active Substance: IRON\MINERALS\POTASSIUM IOD\SODIUM FLUORIDE\SODIUM MOLYBDATE\SODIUM SELENITE\ZINC
     Indication: HYPOMAGNESAEMIA
     Dosage: 500 MILLILITER, Q2WEEKS
     Route: 042
     Dates: start: 20210722
  4. TEDUGLUTIDE [Suspect]
     Active Substance: TEDUGLUTIDE
     Indication: SHORT-BOWEL SYNDROME
     Dosage: 0.05 MILLIGRAM/KILOGRAM, QD
     Route: 065
     Dates: start: 20160705, end: 202004
  5. TEDUGLUTIDE [Suspect]
     Active Substance: TEDUGLUTIDE
     Indication: SHORT-BOWEL SYNDROME
     Dosage: 0.05 MILLIGRAM/KILOGRAM, QD
     Route: 065
     Dates: start: 20160705, end: 202004
  6. SPASMAG [Concomitant]
     Indication: HYPOMAGNESAEMIA
     Dosage: 500 MILLILITER, Q2WEEKS
     Route: 042
     Dates: start: 20210722
  7. CERNEVIT [Concomitant]
     Active Substance: VITAMINS
     Indication: POLYARTHRITIS
     Dosage: 500 MILLILITER, 1/WEEK
     Route: 042
     Dates: start: 20210107, end: 20210609
  8. CERNEVIT [Concomitant]
     Active Substance: VITAMINS
     Indication: HYPOMAGNESAEMIA
     Dosage: 500 MILLILITER, Q2WEEKS
     Route: 042
     Dates: start: 20210722
  9. NUTRYELT [Concomitant]
     Active Substance: IRON\MINERALS\POTASSIUM IOD\SODIUM FLUORIDE\SODIUM MOLYBDATE\SODIUM SELENITE\ZINC
     Indication: CHONDROCALCINOSIS
     Dosage: 500 MILLILITER, 1/WEEK
     Route: 042
     Dates: start: 20210610, end: 20210721
  10. TEDUGLUTIDE [Suspect]
     Active Substance: TEDUGLUTIDE
     Indication: SHORT-BOWEL SYNDROME
     Dosage: 0.05 MILLIGRAM/KILOGRAM, QD
     Route: 065
     Dates: start: 20160705, end: 202004
  11. MAGNESIUM [Concomitant]
     Active Substance: MAGNESIUM
     Indication: POLYARTHRITIS
     Dosage: 1 TABLET , BID
     Route: 048
     Dates: start: 20210610
  12. MAGNESIUM [Concomitant]
     Active Substance: MAGNESIUM
     Indication: HYPOMAGNESAEMIA
  13. CERNEVIT [Concomitant]
     Active Substance: VITAMINS
     Indication: CHONDROCALCINOSIS
     Dosage: 500 MILLILITER, 1/WEEK
     Route: 042
     Dates: start: 20210610, end: 20210721
  14. NUTRYELT [Concomitant]
     Active Substance: IRON\MINERALS\POTASSIUM IOD\SODIUM FLUORIDE\SODIUM MOLYBDATE\SODIUM SELENITE\ZINC
     Indication: POLYARTHRITIS
     Dosage: 500 MILLILITER, 1/WEEK
     Route: 042
     Dates: start: 20210107, end: 20210609
  15. TEDUGLUTIDE [Suspect]
     Active Substance: TEDUGLUTIDE
     Indication: SHORT-BOWEL SYNDROME
     Dosage: 0.05 MILLIGRAM/KILOGRAM, QD
     Route: 065
     Dates: start: 20160705, end: 202004
  16. MAGNESIUM [Concomitant]
     Active Substance: MAGNESIUM
     Indication: CHONDROCALCINOSIS

REACTIONS (3)
  - Polyarthritis [Not Recovered/Not Resolved]
  - Pyrexia [Recovered/Resolved]
  - Pulmonary tuberculosis [Recovered/Resolved]

NARRATIVE: CASE EVENT DATE: 20200924
